FAERS Safety Report 6187019-8 (Version None)
Quarter: 2009Q2

REPORT INFORMATION
  Report Type: 
  Country: None (occurrence: None)
  Receive Date: 20090508
  Receipt Date: 20090508
  Transmission Date: 20091009
  Serious: Yes (Other)
  Sender: FDA-Public Use
  Company Number: None

PATIENT
  Age: 38 Year
  Sex: Female
  Weight: 86.1834 kg

DRUGS (2)
  1. BUDERPIRON XL 300MG TEVA [Suspect]
     Indication: AFFECTIVE DISORDER
     Dosage: ONE TABLET ONCE A DAY PO
     Route: 048
     Dates: start: 20090425, end: 20090507
  2. BUDERPIRON XL 300MG TEVA [Suspect]
     Indication: DEPRESSION
     Dosage: ONE TABLET ONCE A DAY PO
     Route: 048
     Dates: start: 20090425, end: 20090507

REACTIONS (10)
  - ABDOMINAL DISCOMFORT [None]
  - ANXIETY [None]
  - DEPRESSION [None]
  - DISTURBANCE IN ATTENTION [None]
  - DIZZINESS [None]
  - FEELING ABNORMAL [None]
  - HEADACHE [None]
  - MIGRAINE [None]
  - POOR QUALITY SLEEP [None]
  - PRODUCT SUBSTITUTION ISSUE [None]
